FAERS Safety Report 7075120-6 (Version None)
Quarter: 2010Q4

REPORT INFORMATION
  Report Type: 
  Country: None (occurrence: None)
  Receive Date: 20101029
  Receipt Date: 20100421
  Transmission Date: 20110411
  Serious: No
  Sender: FDA-Public Use
  Company Number: US-WYE-H14638210

PATIENT
  Age: 54 Year
  Sex: Female
  Weight: 65.83 kg

DRUGS (2)
  1. ALAVERT [Suspect]
     Indication: SEASONAL ALLERGY
     Route: 048
     Dates: start: 20100401, end: 20100409
  2. FLUTICASONE PROPIONATE [Concomitant]

REACTIONS (1)
  - DRUG INEFFECTIVE [None]
